FAERS Safety Report 4725846-1 (Version None)
Quarter: 2005Q3

REPORT INFORMATION
  Report Type: 
  Country: None (occurrence: None)
  Receive Date: 20050725
  Receipt Date: 20050725
  Transmission Date: 20060218
  Serious: Yes (Life-Threatening, Hospitalization)
  Sender: FDA-Public Use
  Company Number: None

PATIENT
  Age: 69 Year
  Sex: Male
  Weight: 56 kg

DRUGS (10)
  1. CISPLATIN [Suspect]
     Indication: GASTRIC CANCER
     Dosage: 320 MG ONCE INTRAVENOUS
     Route: 042
     Dates: start: 20040628, end: 20040628
  2. ALLOPURINOL [Concomitant]
  3. ASPIRIN [Concomitant]
  4. FOSINOPRIL [Concomitant]
  5. FUROSEMIDE [Concomitant]
  6. METOPROLOL [Concomitant]
  7. NTG SL [Concomitant]
  8. OMEPRAZOLE [Concomitant]
  9. PROMETHAZINE [Concomitant]
  10. SIMVASTATIN [Concomitant]

REACTIONS (3)
  - BLOOD CREATININE INCREASED [None]
  - MEDICATION ERROR [None]
  - WRONG DRUG ADMINISTERED [None]
